FAERS Safety Report 4902151-1 (Version None)
Quarter: 2006Q1

REPORT INFORMATION
  Report Type: 
  Country: None (occurrence: None)
  Receive Date: 20060206
  Receipt Date: 20050628
  Transmission Date: 20060701
  Serious: Yes (Death, Other)
  Sender: FDA-Public Use
  Company Number: US-MERCK-0506USA03988

PATIENT
  Age: 54 Year
  Sex: Female
  Weight: 111 kg

DRUGS (3)
  1. VIOXX [Suspect]
     Indication: PAIN
     Route: 048
     Dates: start: 19991101, end: 20000101
  2. VIOXX [Suspect]
     Route: 048
     Dates: start: 20010401, end: 20020601
  3. VIOXX [Suspect]
     Route: 048
     Dates: start: 19991101, end: 20020701

REACTIONS (8)
  - ANGINA PECTORIS [None]
  - CARDIAC ARREST [None]
  - CHEST PAIN [None]
  - DYSPNOEA [None]
  - HYPERTENSION [None]
  - MYOCARDIAL INFARCTION [None]
  - OEDEMA [None]
  - THROMBOSIS [None]
